FAERS Safety Report 5923062-9 (Version None)
Quarter: 2008Q4

REPORT INFORMATION
  Report Type: 
  Country: None (occurrence: None)
  Receive Date: 20081018
  Receipt Date: 20081007
  Transmission Date: 20090506
  Serious: Yes (Other)
  Sender: FDA-Public Use
  Company Number: DE-PFIZER INC-2008084841

PATIENT
  Age: 38 Year
  Sex: Female

DRUGS (2)
  1. CLINDAMYCIN HYDROCHLORIDE [Suspect]
     Indication: TOOTH DISORDER
     Route: 048
     Dates: start: 20080801, end: 20080101
  2. JODID [Concomitant]

REACTIONS (1)
  - ENTERITIS [None]
